FAERS Safety Report 5579001-6 (Version None)
Quarter: 2007Q4

REPORT INFORMATION
  Report Type: 
  Country: None (occurrence: None)
  Receive Date: 20071228
  Receipt Date: 20071217
  Transmission Date: 20080405
  Serious: Yes (Death, Life-Threatening)
  Sender: FDA-Public Use
  Company Number: 2007US003131

PATIENT
  Age: 74 Year
  Sex: Male

DRUGS (4)
  1. MYCAMINE [Suspect]
     Indication: FUNGAL INFECTION
     Dosage: 100 MG, UID/QD,; 150 MG, UID/QD,; 100 MG, UID/QD,
     Dates: start: 20070810, end: 20070824
  2. MYCAMINE [Suspect]
     Indication: FUNGAL INFECTION
     Dosage: 100 MG, UID/QD,; 150 MG, UID/QD,; 100 MG, UID/QD,
     Dates: start: 20071002, end: 20071002
  3. MYCAMINE [Suspect]
     Indication: FUNGAL INFECTION
     Dosage: 100 MG, UID/QD,; 150 MG, UID/QD,; 100 MG, UID/QD,
     Dates: start: 20071003, end: 20071003
  4. FLUCONAZOLE [Concomitant]

REACTIONS (6)
  - ALANINE AMINOTRANSFERASE INCREASED [None]
  - ASPARTATE AMINOTRANSFERASE INCREASED [None]
  - BLADDER NEOPLASM [None]
  - BLOOD ALKALINE PHOSPHATASE INCREASED [None]
  - BLOOD BILIRUBIN INCREASED [None]
  - CANDIDIASIS [None]
